FAERS Safety Report 19136996 (Version 1)
Quarter: 2021Q2

REPORT INFORMATION
  Report Type: Spontaneous
  Country: ES (occurrence: ES)
  Receive Date: 20210415
  Receipt Date: 20210415
  Transmission Date: 20210717
  Serious: No
  Sender: FDA-Public Use
  Company Number: ES-LUPIN PHARMACEUTICALS INC.-2021-04683

PATIENT
  Age: 42 Year
  Sex: Female

DRUGS (3)
  1. BILASTINE [Suspect]
     Active Substance: BILASTINE
     Indication: DERMATITIS CONTACT
     Dosage: 20 MILLIGRAM, QD
     Route: 065
  2. PREDNISONE. [Suspect]
     Active Substance: PREDNISONE
     Indication: DERMATITIS CONTACT
     Dosage: 1 MILLIGRAM/KILOGRAM, QD
     Route: 065
  3. METHYLPREDNISOLONE. [Suspect]
     Active Substance: METHYLPREDNISOLONE
     Indication: DERMATITIS CONTACT
     Dosage: UNK (CREAM)
     Route: 061

REACTIONS (1)
  - Therapy non-responder [Unknown]
